FAERS Safety Report 6672705-3 (Version None)
Quarter: 2010Q2

REPORT INFORMATION
  Report Type: 
  Country: None (occurrence: None)
  Receive Date: 20100408
  Receipt Date: 20100330
  Transmission Date: 20101027
  Serious: Yes (Hospitalization)
  Sender: FDA-Public Use
  Company Number: US-JNJFOC-20100400428

PATIENT
  Sex: Male
  Weight: 79.38 kg

DRUGS (10)
  1. REMICADE [Suspect]
     Indication: CROHN'S DISEASE
     Route: 042
  2. ALENDRONATE SODIUM [Concomitant]
  3. LISINOPRIL [Concomitant]
  4. AZATHIOPRINE [Concomitant]
  5. METOPROLOL TARTRATE [Concomitant]
  6. AMLODIPINE [Concomitant]
  7. METOCLOPRAMIDE HYDROCHLORIDE [Concomitant]
  8. LOPERAMIDE [Concomitant]
  9. VITAMIN B-12 [Concomitant]
  10. CALCIUM AND MAGNESIUM [Concomitant]

REACTIONS (4)
  - ARTHRALGIA [None]
  - DYSPHAGIA [None]
  - FLANK PAIN [None]
  - INFUSION RELATED REACTION [None]
